FAERS Safety Report 24888693 (Version 1)
Quarter: 2025Q1

REPORT INFORMATION
  Report Type: Spontaneous
  Country: DE (occurrence: DE)
  Receive Date: 20250127
  Receipt Date: 20250127
  Transmission Date: 20250409
  Serious: Yes (Hospitalization, Other)
  Sender: RANBAXY
  Company Number: DE-SUN PHARMACEUTICAL INDUSTRIES LTD-2025RR-489736

PATIENT
  Age: 7 Year
  Sex: Male
  Weight: 21 kg

DRUGS (3)
  1. DEFERASIROX [Suspect]
     Active Substance: DEFERASIROX
     Indication: Thalassaemia beta
     Dosage: 360 MILLIGRAM, DAILY
     Route: 048
     Dates: start: 20170803, end: 20231025
  2. DEFERASIROX [Suspect]
     Active Substance: DEFERASIROX
     Indication: Iron overload
  3. DEFERASIROX [Suspect]
     Active Substance: DEFERASIROX
     Indication: Red blood cell transfusion

REACTIONS (12)
  - Disturbance in attention [Recovered/Resolved]
  - Seizure [Recovered/Resolved]
  - Pyrexia [Recovered/Resolved]
  - Hyperammonaemia [Recovered/Resolved]
  - Hypoglycaemia [Recovered/Resolved]
  - Prothrombin time prolonged [Recovered/Resolved]
  - Encephalitis [Recovered/Resolved]
  - Metabolic acidosis [Recovered/Resolved]
  - Urea cycle disorder [Recovered/Resolved]
  - Areflexia [Recovered/Resolved]
  - Dialysis [Recovered/Resolved]
  - Endotracheal intubation [Recovered/Resolved]

NARRATIVE: CASE EVENT DATE: 20231001
